FAERS Safety Report 20421529 (Version 1)
Quarter: 2022Q1

REPORT INFORMATION
  Report Type: Spontaneous
  Country: FR (occurrence: FR)
  Receive Date: 20220203
  Receipt Date: 20220203
  Transmission Date: 20220423
  Serious: No
  Sender: FDA-Public Use
  Company Number: None

PATIENT
  Age: 65 Year
  Sex: Female

DRUGS (5)
  1. OLANZAPINE [Suspect]
     Active Substance: OLANZAPINE
     Indication: Major depression
     Dosage: 10 MG DAILY THEN 15 MG DAILY
     Route: 048
     Dates: start: 20210729, end: 20211221
  2. SPIRONOLACTONE [Concomitant]
     Active Substance: SPIRONOLACTONE
     Indication: Hyperplasia adrenal
     Dosage: 75 MG, DAILY
     Route: 048
     Dates: start: 20210831
  3. LORAZEPAM [Concomitant]
     Active Substance: LORAZEPAM
     Indication: Major depression
     Dosage: 1 MGX3 /D THEN 0.5MGX2 /D
     Route: 048
     Dates: start: 20210809
  4. VENLAFAXINE [Concomitant]
     Active Substance: VENLAFAXINE HYDROCHLORIDE
     Indication: Major depression
     Dosage: 75 MG / D THEN 150 MG / DAY THEN 225 MG / DAY
     Route: 048
     Dates: start: 20210729
  5. QUETIAPINE [Concomitant]
     Active Substance: QUETIAPINE
     Indication: Major depression
     Dosage: 150 MG, DAILY
     Route: 048
     Dates: start: 20211220

REACTIONS (2)
  - Leukopenia [Recovered/Resolved]
  - Neutropenia [Recovered/Resolved]

NARRATIVE: CASE EVENT DATE: 20211221
